FAERS Safety Report 7395856-7 (Version None)
Quarter: 2011Q2

REPORT INFORMATION
  Report Type: 
  Country: None (occurrence: None)
  Receive Date: 20110405
  Receipt Date: 20110308
  Transmission Date: 20111010
  Serious: No
  Sender: FDA-Public Use
  Company Number: US-BAYER-2011-022874

PATIENT
  Sex: Female
  Weight: 41 kg

DRUGS (7)
  1. UNCODEABLE ^UNCLASSIFIABLE^ [Concomitant]
     Indication: HYPERTENSION
     Dosage: UNK
  2. ZANTAC [Concomitant]
     Dosage: UNK
  3. UNCODEABLE ^UNCLASSIFIABLE^ [Concomitant]
     Indication: BLOOD CHOLESTEROL INCREASED
     Dosage: UNK
  4. UNCODEABLE ^UNCLASSIFIABLE^ [Concomitant]
     Indication: DIABETES MELLITUS
     Dosage: UNK
  5. BONIVA [Concomitant]
     Dosage: UNK
  6. ALEVE (CAPLET) [Suspect]
     Indication: ARTHRITIS
     Dosage: 2 DF, QD
     Route: 048
     Dates: start: 20110201
  7. ANTIHISTAMINES [Concomitant]
     Dosage: UNK UNK, PRN

REACTIONS (1)
  - NO ADVERSE EVENT [None]
